FAERS Safety Report 4394934-4 (Version None)
Quarter: 2004Q3

REPORT INFORMATION
  Report Type: 
  Country: None (occurrence: None)
  Receive Date: 20040712
  Receipt Date: 20040531
  Transmission Date: 20050211
  Serious: Yes (Other)
  Sender: FDA-Public Use
  Company Number: AU-GLAXOSMITHKLINE-B0334533A

PATIENT
  Age: 36 Year
  Sex: Female

DRUGS (1)
  1. VALTREX [Suspect]
     Dosage: 500MG PER DAY
     Route: 048
     Dates: start: 20040217, end: 20040218

REACTIONS (5)
  - ANAPHYLACTIC REACTION [None]
  - BLEPHARITIS [None]
  - BRONCHOSPASM [None]
  - URTICARIA [None]
  - WHEEZING [None]
